FAERS Safety Report 11534316 (Version 3)
Quarter: 2015Q3

REPORT INFORMATION
  Report Type: Spontaneous
  Country: BA (occurrence: BA)
  Receive Date: 20150922
  Receipt Date: 20150928
  Transmission Date: 20151125
  Serious: Yes (Hospitalization)
  Sender: FDA-Public Use
  Company Number: BA-009507513-1509BIH008484

PATIENT
  Age: 67 Year
  Sex: Female

DRUGS (6)
  1. SIOFOR [Concomitant]
     Active Substance: METFORMIN HYDROCHLORIDE
     Dosage: 2/DAY INCREASED TO 3/DAY
     Route: 048
  2. SIMVASTATIN. [Concomitant]
     Active Substance: SIMVASTATIN
     Dosage: UNK
     Route: 048
  3. CYNOGLOSSUM AMABILE [Concomitant]
     Route: 048
  4. LOPRIL (LISINOPRIL) [Concomitant]
     Route: 048
  5. JANUVIA [Suspect]
     Active Substance: SITAGLIPTIN PHOSPHATE
     Indication: DIABETES MELLITUS
     Dosage: TOTAL DAILY DOSE 100MG
     Route: 048
     Dates: start: 201402, end: 201509
  6. SIOFOR [Concomitant]
     Active Substance: METFORMIN HYDROCHLORIDE
     Dosage: 2/DAY INCREASED TO 3/DAY
     Route: 048

REACTIONS (3)
  - Urticaria chronic [Recovered/Resolved]
  - Dyspnoea [Unknown]
  - Dermatitis allergic [Recovering/Resolving]

NARRATIVE: CASE EVENT DATE: 201501
